FAERS Safety Report 6604800-9 (Version None)
Quarter: 2010Q1

REPORT INFORMATION
  Report Type: 
  Country: None (occurrence: None)
  Receive Date: 20100226
  Receipt Date: 20100219
  Transmission Date: 20100710
  Serious: Yes (Other)
  Sender: FDA-Public Use
  Company Number: CA-ROCHE-686804

PATIENT
  Sex: Male

DRUGS (4)
  1. PEGASYS [Suspect]
     Indication: HEPATITIS C
     Route: 058
     Dates: start: 20081128, end: 20091030
  2. COPEGUS [Suspect]
     Indication: HEPATITIS C
     Route: 048
     Dates: start: 20081128, end: 20090303
  3. COPEGUS [Suspect]
     Route: 048
     Dates: start: 20090303, end: 20090817
  4. COPEGUS [Suspect]
     Route: 048
     Dates: start: 20090817, end: 20091030

REACTIONS (2)
  - ANAEMIA [None]
  - AUTOIMMUNE HEPATITIS [None]
